FAERS Safety Report 6120997-1 (Version None)
Quarter: 2009Q1

REPORT INFORMATION
  Report Type: 
  Country: None (occurrence: None)
  Receive Date: 20090317
  Receipt Date: 20090306
  Transmission Date: 20090719
  Serious: Yes (Hospitalization, Other)
  Sender: FDA-Public Use
  Company Number: PHHY2009AU05945

PATIENT
  Sex: Male

DRUGS (1)
  1. CLOZARIL [Suspect]
     Dosage: 500 MG
     Route: 048
     Dates: start: 19951030

REACTIONS (4)
  - DRUG LEVEL INCREASED [None]
  - TACHYCARDIA [None]
  - URINARY TRACT INFECTION BACTERIAL [None]
  - UROSEPSIS [None]
